FAERS Safety Report 8872323 (Version 4)
Quarter: 2012Q4

REPORT INFORMATION
  Report Type: 
  Country: US (occurrence: US)
  Receive Date: 20121029
  Receipt Date: 20121205
  Transmission Date: 20130627
  Serious: Yes (Death, Life-Threatening, Hospitalization)
  Sender: FDA-Public Use
  Company Number: US-009507513-1210USA008237

PATIENT
  Age: 74 Year
  Sex: Male

DRUGS (1)
  1. NOXAFIL [Suspect]
     Dosage: 5 ml, qid
     Route: 048
     Dates: start: 201208

REACTIONS (1)
  - Death [Fatal]
